FAERS Safety Report 12946594 (Version 1)
Quarter: 2016Q4

REPORT INFORMATION
  Report Type: Spontaneous
  Country: US (occurrence: US)
  Receive Date: 20161116
  Receipt Date: 20161116
  Transmission Date: 20170207
  Serious: No
  Sender: FDA-Public Use
  Company Number: US-BAYER-2016-217751

PATIENT
  Age: 82 Year
  Sex: Female
  Weight: 63.49 kg

DRUGS (6)
  1. MIRALAX [Suspect]
     Active Substance: POLYETHYLENE GLYCOL 3350
     Indication: GASTROINTESTINAL DISORDER
  2. BRIMONIDINE [Concomitant]
     Active Substance: BRIMONIDINE TARTRATE
  3. MIRALAX [Suspect]
     Active Substance: POLYETHYLENE GLYCOL 3350
     Indication: GASTROINTESTINAL DISORDER
     Dosage: QUARTER OF A TEASPOON
     Dates: end: 20161110
  4. DORZOLAMIDE [Concomitant]
     Active Substance: DORZOLAMIDE
  5. TRAVATAN [Concomitant]
     Active Substance: TRAVOPROST
  6. SYSTEN [ESTRADIOL] [Concomitant]

REACTIONS (3)
  - Product use issue [Unknown]
  - Vision blurred [Unknown]
  - Vision blurred [Not Recovered/Not Resolved]

NARRATIVE: CASE EVENT DATE: 20161109
